FAERS Safety Report 8255698-7 (Version None)
Quarter: 2012Q2

REPORT INFORMATION
  Report Type: 
  Country: None (occurrence: None)
  Receive Date: 20120403
  Receipt Date: 20120403
  Transmission Date: 20120825
  Serious: Yes (Hospitalization, Other)
  Sender: FDA-Public Use
  Company Number: None

PATIENT
  Sex: Female
  Weight: 68 kg

DRUGS (1)
  1. DOXORUBICIN HCL [Suspect]

REACTIONS (4)
  - BRONCHITIS [None]
  - CARDIAC FAILURE CONGESTIVE [None]
  - ASTHMA [None]
  - ATRIAL FIBRILLATION [None]
